FAERS Safety Report 15452856 (Version 1)
Quarter: 2018Q4

REPORT INFORMATION
  Report Type: Spontaneous
  Country: RO (occurrence: RO)
  Receive Date: 20181001
  Receipt Date: 20181001
  Transmission Date: 20190204
  Serious: Yes (Hospitalization)
  Sender: FDA-Public Use
  Company Number: RO-LPDUSPRD-20181767

PATIENT
  Age: 34 Year
  Sex: Female

DRUGS (9)
  1. VENOFER [Suspect]
     Active Substance: IRON SUCROSE
     Dosage: UNKNOWN
     Route: 042
  2. FOLIC ACID. [Suspect]
     Active Substance: FOLIC ACID
     Dosage: 1 MG (1 IN 1 D)
     Route: 065
  3. ANAGRELIDE. [Suspect]
     Active Substance: ANAGRELIDE HYDROCHLORIDE
     Dosage: 1 MG (1 IN 1 D)
     Route: 065
  4. FERINJECT [Suspect]
     Active Substance: FERRIC CARBOXYMALTOSE
     Dosage: UNKNOWN
     Route: 042
  5. ASPIRIN. [Suspect]
     Active Substance: ASPIRIN
     Dosage: 75 MG (1 IN 1 D)
     Route: 065
  6. INTERFERON ALFA- 2A [Suspect]
     Active Substance: INTERFERON ALFA-2A
     Dosage: 1 DOSAGE FORMS (1 IN 1 D)
     Route: 065
  7. ASCORBIC ACID. [Suspect]
     Active Substance: ASCORBIC ACID
     Dosage: 1 GM ( 1 IN 1 D)
     Route: 065
  8. HEPARIN [Suspect]
     Active Substance: HEPARIN SODIUM
     Dosage: 1DF 6000 UL( 1 DOSAGE FORMS)
     Route: 065
  9. VITAMIN B6 [Suspect]
     Active Substance: PYRIDOXINE HYDROCHLORIDE
     Dosage: 250 MG (1 IN 1 D)
     Route: 065

REACTIONS (8)
  - Normal newborn [Unknown]
  - Cervix disorder [Unknown]
  - Platelet count increased [Unknown]
  - Off label use [Unknown]
  - Platelet count decreased [Unknown]
  - Metrorrhagia [Unknown]
  - Haemoglobin decreased [Unknown]
  - Maternal exposure during pregnancy [Recovered/Resolved]
